FAERS Safety Report 24351504 (Version 1)
Quarter: 2024Q3

REPORT INFORMATION
  Report Type: Spontaneous
  Country: RU (occurrence: RU)
  Receive Date: 20240923
  Receipt Date: 20240923
  Transmission Date: 20241016
  Serious: No
  Sender: ROCHE
  Company Number: RU-ROCHE-3550646

PATIENT
  Age: 44 Year
  Sex: Female

DRUGS (10)
  1. TRASTUZUMAB [Suspect]
     Active Substance: TRASTUZUMAB
     Indication: Breast cancer
     Dosage: (LOADING DOSE OF 8 MG/KG)
     Route: 065
     Dates: start: 20191210, end: 20200323
  2. TRASTUZUMAB [Suspect]
     Active Substance: TRASTUZUMAB
     Dosage: 42 COURSES
     Route: 065
     Dates: start: 20200505, end: 20221110
  3. PERTUZUMAB [Suspect]
     Active Substance: PERTUZUMAB
     Indication: Breast cancer
     Dosage: (LOADING DOSE OF 840 MG).
     Route: 065
     Dates: start: 20191210, end: 20200323
  4. PERTUZUMAB [Suspect]
     Active Substance: PERTUZUMAB
     Dosage: 42 COURSES
     Route: 065
     Dates: start: 20200505, end: 20221110
  5. DOCETAXEL [Suspect]
     Active Substance: DOCETAXEL\DOCETAXEL ANHYDROUS
     Indication: Breast cancer
     Route: 065
     Dates: start: 20191210, end: 20200323
  6. DOCETAXEL [Suspect]
     Active Substance: DOCETAXEL\DOCETAXEL ANHYDROUS
     Dosage: 6 COURSES OF 1ST LINE DCT WITH DOCETAXEL
     Route: 065
     Dates: start: 20200505, end: 20221110
  7. ADO-TRASTUZUMAB EMTANSINE [Suspect]
     Active Substance: ADO-TRASTUZUMAB EMTANSINE
     Indication: Breast cancer
     Dosage: 6 COURSES OF 2ND LINE THERAPY
     Route: 065
     Dates: start: 20230110, end: 20230427
  8. ADO-TRASTUZUMAB EMTANSINE [Suspect]
     Active Substance: ADO-TRASTUZUMAB EMTANSINE
     Route: 065
     Dates: start: 202305
  9. DENOSUMAB [Concomitant]
     Active Substance: DENOSUMAB
     Dosage: PLANNED EVERY 4 WEEKS FOR 2 YEARS
     Route: 065
     Dates: start: 20191206
  10. LETROZOLE [Concomitant]
     Active Substance: LETROZOLE
     Route: 065
     Dates: start: 202007, end: 202211

REACTIONS (2)
  - Haematotoxicity [Unknown]
  - Anaemia [Unknown]
